FAERS Safety Report 23973318 (Version 1)
Quarter: 2024Q2

REPORT INFORMATION
  Report Type: Report from Study
  Country: CO (occurrence: CO)
  Receive Date: 20240613
  Receipt Date: 20240613
  Transmission Date: 20240716
  Serious: Yes (Hospitalization)
  Sender: FDA-Public Use
  Company Number: CO-KYOWAKIRIN-2024KK014302

PATIENT

DRUGS (10)
  1. CRYSVITA [Suspect]
     Active Substance: BUROSUMAB-TWZA
     Indication: Hereditary hypophosphataemic rickets
     Dosage: 60 MILLIGRAM, MONTHLY
     Route: 058
     Dates: start: 20240527
  2. CRYSVITA [Suspect]
     Active Substance: BUROSUMAB-TWZA
     Dosage: 60 MILLIGRAM, MONTHLY
     Route: 058
     Dates: start: 20200821, end: 20210222
  3. CRYSVITA [Suspect]
     Active Substance: BUROSUMAB-TWZA
     Dosage: 60 MILLIGRAM, MONTHLY
     Route: 058
     Dates: start: 20210326, end: 20210927
  4. CRYSVITA [Suspect]
     Active Substance: BUROSUMAB-TWZA
     Dosage: 60 MILLIGRAM, MONTHLY
     Route: 058
     Dates: start: 20211116, end: 20211116
  5. CRYSVITA [Suspect]
     Active Substance: BUROSUMAB-TWZA
     Dosage: 60 MILLIGRAM, MONTHLY
     Route: 058
     Dates: start: 20211228, end: 20220127
  6. CRYSVITA [Suspect]
     Active Substance: BUROSUMAB-TWZA
     Dosage: 60 MILLIGRAM, MONTHLY
     Route: 058
     Dates: start: 20220309, end: 20220811
  7. CRYSVITA [Suspect]
     Active Substance: BUROSUMAB-TWZA
     Dosage: 60 MILLIGRAM, MONTHLY
     Route: 058
     Dates: start: 20220915, end: 20230523
  8. CRYSVITA [Suspect]
     Active Substance: BUROSUMAB-TWZA
     Dosage: 60 MILLIGRAM, MONTHLY
     Route: 058
     Dates: start: 20230701, end: 20231103
  9. CRYSVITA [Suspect]
     Active Substance: BUROSUMAB-TWZA
     Dosage: 60 MILLIGRAM, MONTHLY
     Route: 058
     Dates: start: 20231221, end: 20240123
  10. CRYSVITA [Suspect]
     Active Substance: BUROSUMAB-TWZA
     Dosage: 60 MILLIGRAM, MONTHLY
     Route: 058
     Dates: start: 20240327, end: 20240426

REACTIONS (6)
  - Vomiting [Recovering/Resolving]
  - Blood phosphorus decreased [Recovering/Resolving]
  - Facial spasm [Recovering/Resolving]
  - Abdominal pain upper [Recovering/Resolving]
  - Muscle spasms [Recovering/Resolving]
  - Underdose [Not Recovered/Not Resolved]

NARRATIVE: CASE EVENT DATE: 20200821
